FAERS Safety Report 8801693 (Version 3)
Quarter: 2012Q4

REPORT INFORMATION
  Report Type: Report from Study
  Country: FR (occurrence: FR)
  Receive Date: 20120921
  Receipt Date: 20121008
  Transmission Date: 20130627
  Serious: Yes (Hospitalization)
  Sender: FDA-Public Use
  Company Number: FR-UCBSA-066236

PATIENT
  Age: 52 Year
  Sex: Female
  Weight: 80 kg

DRUGS (6)
  1. CIMZIA [Suspect]
     Indication: RHEUMATOID ARTHRITIS
     Route: 058
     Dates: start: 20120516, end: 20120627
  2. IMETH [Concomitant]
     Indication: RHEUMATOID ARTHRITIS
     Route: 048
     Dates: start: 20100920, end: 20120728
  3. VOLTARENE [Concomitant]
     Indication: RHEUMATOID ARTHRITIS
     Dosage: SUSTAINED RELEASE
     Route: 048
     Dates: start: 20110210
  4. CORTANCYL [Concomitant]
     Indication: RHEUMATOID ARTHRITIS
     Route: 048
     Dates: start: 20111004
  5. INEXIUM [Concomitant]
     Indication: RHEUMATOID ARTHRITIS
     Dates: start: 20110210
  6. COTAREG [Concomitant]
     Indication: RHEUMATOID ARTHRITIS
     Dates: start: 20120509

REACTIONS (3)
  - Lung infection [Unknown]
  - Bronchopneumopathy [Recovered/Resolved]
  - Hepatocellular injury [Recovered/Resolved]
